FAERS Safety Report 10230581 (Version 1)
Quarter: 2014Q2

REPORT INFORMATION
  Report Type: Spontaneous
  Country: US (occurrence: US)
  Receive Date: 20140611
  Receipt Date: 20140611
  Transmission Date: 20141212
  Serious: No
  Sender: FDA-Public Use
  Company Number: US-INCYTE CORPORATION-2014IN001252

PATIENT
  Age: 59 Year
  Sex: Female

DRUGS (7)
  1. JAKAFI [Suspect]
     Indication: BLOOD DISORDER
     Dosage: 20 MG, BID
     Route: 048
     Dates: start: 20121010
  2. PREDNISONE [Concomitant]
  3. HYDROCODONE [Concomitant]
  4. DILTIAZEM [Concomitant]
  5. AZITHROMYCIN [Concomitant]
  6. TRACLEER                           /01587701/ [Concomitant]
  7. ADCIRCA [Concomitant]

REACTIONS (2)
  - Dyspnoea [Not Recovered/Not Resolved]
  - Weight increased [Not Recovered/Not Resolved]
